FAERS Safety Report 5520041-0 (Version None)
Quarter: 2007Q4

REPORT INFORMATION
  Report Type: 
  Country: None (occurrence: None)
  Receive Date: 20071116
  Receipt Date: 20071109
  Transmission Date: 20080405
  Serious: Yes (Other)
  Sender: FDA-Public Use
  Company Number: US-GENENTECH-251364

PATIENT
  Sex: Female
  Weight: 61.8 kg

DRUGS (3)
  1. BEVACIZUMAB [Suspect]
     Indication: PANCREATIC CARCINOMA
     Dosage: 10 MG/KG, Q2W
     Route: 042
     Dates: start: 20071011
  2. GEMCITABINE [Concomitant]
     Indication: PANCREATIC CARCINOMA
     Dosage: 1000 MG/M2, Q2W
     Route: 042
  3. DOCETAXEL [Concomitant]
     Indication: PANCREATIC CARCINOMA
     Dosage: 40 MG/M2, Q2W
     Route: 042

REACTIONS (1)
  - ATELECTASIS [None]
